FAERS Safety Report 11072640 (Version 1)
Quarter: 2015Q2

REPORT INFORMATION
  Report Type: Spontaneous
  Country: CN (occurrence: CN)
  Receive Date: 20150428
  Receipt Date: 20150428
  Transmission Date: 20150821
  Serious: Yes (Hospitalization)
  Sender: FDA-Public Use
  Company Number: CN-CIPLA LTD.-2015CN03290

PATIENT

DRUGS (1)
  1. AMLODIPINE [Suspect]
     Active Substance: AMLODIPINE BESYLATE
     Dosage: 420 MG, SINGLE
     Route: 048

REACTIONS (25)
  - Loss of consciousness [Recovered/Resolved]
  - Peripheral coldness [Recovered/Resolved]
  - Dilatation ventricular [Unknown]
  - Dizziness [Recovered/Resolved]
  - Metabolic acidosis [Unknown]
  - Lung infiltration [None]
  - Pulmonary oedema [Unknown]
  - Vomiting [Unknown]
  - Heart rate abnormal [Unknown]
  - Blood pressure abnormal [Unknown]
  - Respiratory distress [Unknown]
  - Shock [Unknown]
  - Overdose [Unknown]
  - Cough [Unknown]
  - Abdominal pain [Unknown]
  - Hyperhidrosis [Unknown]
  - Palpitations [Unknown]
  - Hypoxia [Unknown]
  - Dyspnoea [Unknown]
  - Nausea [Unknown]
  - Pallor [Unknown]
  - Suicide attempt [Unknown]
  - Oedema peripheral [Unknown]
  - Oliguria [Unknown]
  - Fatigue [Unknown]
